FAERS Safety Report 7271379-0 (Version None)
Quarter: 2011Q1

REPORT INFORMATION
  Report Type: 
  Country: None (occurrence: None)
  Receive Date: 20110203
  Receipt Date: 20110120
  Transmission Date: 20110831
  Serious: No
  Sender: FDA-Public Use
  Company Number: US-BIOGENIDEC-2011BI003366

PATIENT
  Sex: Female

DRUGS (1)
  1. TYSABRI [Suspect]
     Indication: MULTIPLE SCLEROSIS
     Route: 042
     Dates: start: 20091106

REACTIONS (9)
  - MUSCULAR WEAKNESS [None]
  - HYPOAESTHESIA [None]
  - SENSORY DISTURBANCE [None]
  - STRESS [None]
  - MIGRAINE [None]
  - HEMICEPHALALGIA [None]
  - BACK PAIN [None]
  - NECK PAIN [None]
  - HYPOAESTHESIA FACIAL [None]
